FAERS Safety Report 7723518-2 (Version None)
Quarter: 2011Q3

REPORT INFORMATION
  Report Type: 
  Country: None (occurrence: None)
  Receive Date: 20110901
  Receipt Date: 20110822
  Transmission Date: 20111222
  Serious: Yes (Death, Hospitalization)
  Sender: FDA-Public Use
  Company Number: US-VIROPHARMA INCORPORATED-20110808CINRY2169

PATIENT
  Sex: Female

DRUGS (2)
  1. CINRYZE [Suspect]
     Indication: HEREDITARY ANGIOEDEMA
     Dosage: UNKNOWN
  2. ANTICOAGULANT THERAPY [Concomitant]
     Indication: PULMONARY EMBOLISM

REACTIONS (6)
  - BRADYCARDIA [None]
  - FALL [None]
  - SYNCOPE [None]
  - MENTAL STATUS CHANGES [None]
  - DEATH [None]
  - ARRHYTHMIA [None]
